FAERS Safety Report 19364256 (Version 2)
Quarter: 2024Q1

REPORT INFORMATION
  Report Type: Spontaneous
  Country: US (occurrence: US)
  Receive Date: 20210603
  Receipt Date: 20240214
  Transmission Date: 20240410
  Serious: Yes (Life-Threatening, Hospitalization)
  Sender: FDA-Public Use
  Company Number: US-TEVA-2021-US-1917615

PATIENT
  Sex: Female

DRUGS (9)
  1. TREPROSTINIL [Suspect]
     Active Substance: TREPROSTINIL
     Indication: Newborn persistent pulmonary hypertension
     Dosage: DOSAGE TEXT: 4NG/KG/MIN STARTED ON DAY 8 OF LIFE
     Route: 058
  2. TREPROSTINIL [Suspect]
     Active Substance: TREPROSTINIL
     Indication: Newborn persistent pulmonary hypertension
     Dosage: DOSAGE TEXT: 30NG/KG/MIN
     Route: 058
  3. NITRIC OXIDE [Suspect]
     Active Substance: NITRIC OXIDE
     Indication: Newborn persistent pulmonary hypertension
     Dosage: DOSAGE TEXT: STARTED ON DAY 1 OF LIFE
     Route: 055
  4. DEXTROSE [Suspect]
     Active Substance: DEXTROSE\DEXTROSE MONOHYDRATE
     Indication: Hypoglycaemia neonatal
     Dosage: DOSAGE TEXT: HIGH-RATE INFUSION
     Route: 050
  5. EPINEPHRINE [Concomitant]
     Active Substance: EPINEPHRINE
     Indication: Drug therapy
     Route: 065
  6. PHENYLEPHRINE [Concomitant]
     Active Substance: PHENYLEPHRINE HYDROCHLORIDE
     Indication: Drug therapy
     Route: 065
  7. VASOPRESSIN [Concomitant]
     Active Substance: VASOPRESSIN
     Indication: Drug therapy
     Route: 065
  8. DEXMEDETOMIDINE [Concomitant]
     Active Substance: DEXMEDETOMIDINE
     Indication: Sedative therapy
     Route: 050
  9. FENTANYL [Concomitant]
     Active Substance: FENTANYL\FENTANYL CITRATE
     Indication: Sedative therapy
     Dosage: DOSAGE TEXT: HIGH-DOSE
     Route: 050

REACTIONS (2)
  - Pulmonary oedema [Recovering/Resolving]
  - Drug ineffective [Unknown]
